FAERS Safety Report 19594933 (Version 2)
Quarter: 2021Q3

REPORT INFORMATION
  Report Type: Spontaneous
  Country: US (occurrence: US)
  Receive Date: 20210722
  Receipt Date: 20210728
  Transmission Date: 20211014
  Serious: Yes (Hospitalization)
  Sender: FDA-Public Use
  Company Number: US-TEVA-2021-US-1933618

PATIENT
  Age: 18 Year
  Sex: Male

DRUGS (4)
  1. 17?BETA?ESTRADIOL [Suspect]
     Active Substance: ESTRADIOL
     Dosage: 2 MILLIGRAM DAILY;
     Route: 048
  2. HISTRELIN?ACETATE [Concomitant]
     Indication: TRANSGENDER HORMONAL THERAPY
     Route: 058
  3. 17?BETA?ESTRADIOL [Suspect]
     Active Substance: ESTRADIOL
     Indication: TRANSGENDER HORMONAL THERAPY
     Dosage: 1 MILLIGRAM DAILY;
     Route: 048
  4. SPIRONOLACTONE. [Concomitant]
     Active Substance: SPIRONOLACTONE
     Indication: TRANSGENDER HORMONAL THERAPY
     Dosage: 50 MILLIGRAM DAILY;
     Route: 048

REACTIONS (2)
  - Infective pulmonary exacerbation of cystic fibrosis [Recovering/Resolving]
  - Pseudomonas infection [Recovering/Resolving]
